FAERS Safety Report 16912040 (Version 4)
Quarter: 2021Q3

REPORT INFORMATION
  Report Type: Spontaneous
  Country: DE (occurrence: DE)
  Receive Date: 20191014
  Receipt Date: 20210816
  Transmission Date: 20211014
  Serious: Yes (Other)
  Sender: FDA-Public Use
  Company Number: DE-AUROBINDO-AUR-APL-2019-065920

PATIENT
  Age: 82 Year
  Sex: Female

DRUGS (16)
  1. DIPIPERON [Suspect]
     Active Substance: PIPAMPERONE
     Indication: SLEEP DISORDER
     Dosage: 20 MILLIGRAM, ONCE A DAY
     Route: 065
  2. RAMIPRIL. [Concomitant]
     Active Substance: RAMIPRIL
     Indication: HYPERTONIA
     Dosage: UNK
     Route: 065
  3. SOLIFENACIN [Suspect]
     Active Substance: SOLIFENACIN
     Indication: HYPERTONIC BLADDER
     Dosage: 2.5 MILLIGRAM, ONCE A DAY
     Route: 065
  4. SOLIFENACIN [Suspect]
     Active Substance: SOLIFENACIN
     Dosage: 2.5 MILLIGRAM, ONCE A DAY
     Route: 065
  5. DORZOLAMIDE [Concomitant]
     Active Substance: DORZOLAMIDE
     Indication: GLAUCOMA
     Dosage: UNK
     Route: 065
  6. MIRTAZAPINE FILM?COATED TABLET [Suspect]
     Active Substance: MIRTAZAPINE
     Dosage: 30 MILLIGRAM, ONCE A DAY
     Route: 065
  7. PIPAMPERONE [Concomitant]
     Active Substance: PIPAMPERONE
     Indication: INSOMNIA
     Dosage: UNK
     Route: 065
  8. MIRTAZAPINE FILM?COATED TABLET [Suspect]
     Active Substance: MIRTAZAPINE
     Dosage: 45 MILLIGRAM, ONCE A DAY
     Route: 065
  9. RISPERIDONE. [Suspect]
     Active Substance: RISPERIDONE
     Indication: ACUTE PSYCHOSIS
     Dosage: 1 ONCE A DAY, BETWEEN 2 AND 3 MG
     Route: 065
  10. SOLIFENACIN [Suspect]
     Active Substance: SOLIFENACIN
     Dosage: 5 MILLIGRAM, ONCE A DAY, (FOR YEARS)
     Route: 065
  11. LORAZEPAM. [Suspect]
     Active Substance: LORAZEPAM
     Indication: ACUTE PSYCHOSIS
     Dosage: 1 MILLIGRAM, ONCE A DAY, FIXED DOSE, MAXIMUM OF 3 MG/DAY AS REQUIRED
     Route: 065
  12. BISOPROLOL [Concomitant]
     Active Substance: BISOPROLOL
     Indication: HYPERTENSION
     Dosage: UNK
     Route: 065
  13. MIRTAZAPINE FILM?COATED TABLET [Suspect]
     Active Substance: MIRTAZAPINE
     Indication: DEPRESSIVE SYMPTOM
     Dosage: 30 MILLIGRAM, ONCE A DAY
     Route: 065
  14. MIRTAZAPINE FILM?COATED TABLET [Suspect]
     Active Substance: MIRTAZAPINE
     Dosage: 15 MILLIGRAM, ONCE A DAY
     Route: 065
  15. RISPERIDONE. [Suspect]
     Active Substance: RISPERIDONE
     Indication: PSYCHOTIC DISORDER
  16. PIPAMPERONE [Concomitant]
     Active Substance: PIPAMPERONE
     Indication: DEPRESSIVE SYMPTOM

REACTIONS (4)
  - Product use in unapproved indication [Unknown]
  - Blood pressure increased [Unknown]
  - Off label use [Unknown]
  - Urinary retention [Recovered/Resolved]
